FAERS Safety Report 5069816-5 (Version None)
Quarter: 2006Q3

REPORT INFORMATION
  Report Type: 
  Country: None (occurrence: None)
  Receive Date: 20060803
  Receipt Date: 20060801
  Transmission Date: 20061208
  Serious: Yes (Death, Hospitalization)
  Sender: FDA-Public Use
  Company Number: US-SANOFI-SYNTHELABO-F01200601775

PATIENT
  Sex: Female

DRUGS (4)
  1. AVASTIN [Suspect]
     Dosage: UNK
     Route: 042
     Dates: start: 20060130, end: 20060130
  2. LEUCOVORIN CALCIUM [Suspect]
     Dosage: UNK
     Route: 042
     Dates: start: 20060130, end: 20060130
  3. FLUOROURACIL [Suspect]
     Route: 065
     Dates: start: 20060130, end: 20060130
  4. OXALIPLATIN [Suspect]
     Indication: COLON CANCER
     Dosage: UNK
     Route: 042
     Dates: start: 20060130, end: 20060130

REACTIONS (3)
  - DYSPNOEA [None]
  - PNEUMONIA [None]
  - PNEUMONITIS [None]
